FAERS Safety Report 16400373 (Version 3)
Quarter: 2020Q1

REPORT INFORMATION
  Report Type: Report from Study
  Country: US (occurrence: US)
  Receive Date: 20190606
  Receipt Date: 20200326
  Transmission Date: 20200409
  Serious: Yes (Hospitalization)
  Sender: FDA-Public Use
  Company Number: US-NOVOPROD-665703

PATIENT
  Age: 67 Year
  Sex: Male

DRUGS (3)
  1. NOVOLOG [Suspect]
     Active Substance: INSULIN ASPART
     Dosage: UNK
     Route: 058
     Dates: start: 201809
  2. NOVOLOG [Suspect]
     Active Substance: INSULIN ASPART
     Indication: DIABETES MELLITUS
     Dosage: 95 IU
     Route: 058
     Dates: start: 1999
  3. LEVEMIR [Concomitant]
     Active Substance: INSULIN DETEMIR
     Indication: DIABETES MELLITUS
     Dosage: 90 MDD
     Route: 058
     Dates: start: 201809

REACTIONS (2)
  - Carotid artery occlusion [Recovered/Resolved]
  - Cardiac operation [Unknown]

NARRATIVE: CASE EVENT DATE: 20180910
